FAERS Safety Report 20701346 (Version 1)
Quarter: 2022Q2

REPORT INFORMATION
  Report Type: Spontaneous
  Country: IN (occurrence: IN)
  Receive Date: 20220412
  Receipt Date: 20220412
  Transmission Date: 20220721
  Serious: Yes (Hospitalization, Other)
  Sender: FDA-Public Use
  Company Number: IN-BoehringerIngelheim-2022-BI-163757

PATIENT
  Age: 74 Year
  Sex: Male

DRUGS (2)
  1. EMPAGLIFLOZIN\LINAGLIPTIN [Suspect]
     Active Substance: EMPAGLIFLOZIN\LINAGLIPTIN
     Indication: Type 2 diabetes mellitus
     Dosage: EMPAGLIFLOZIN 25 MG + LINAGLIPTIN 5 MG
     Route: 048
  2. SUBCUTANEOUS INSULIN [Concomitant]
     Indication: Product used for unknown indication
     Route: 058

REACTIONS (2)
  - Euglycaemic diabetic ketoacidosis [Recovering/Resolving]
  - Coronary artery bypass [Unknown]
